FAERS Safety Report 16128365 (Version 1)
Quarter: 2019Q1

REPORT INFORMATION
  Report Type: Report from Study
  Country: None (occurrence: BR)
  Receive Date: 20190328
  Receipt Date: 20190328
  Transmission Date: 20190418
  Serious: Yes (Other)
  Sender: FDA-Public Use
  Company Number: BR-ABBVIE-18P-020-2439845-00

PATIENT
  Sex: Female
  Weight: 3.84 kg

DRUGS (2)
  1. SYNTHROID [Suspect]
     Active Substance: LEVOTHYROXINE SODIUM
     Route: 063
  2. SYNTHROID [Suspect]
     Active Substance: LEVOTHYROXINE SODIUM
     Indication: MATERNAL EXPOSURE DURING PREGNANCY
     Route: 064

REACTIONS (6)
  - Exposure via breast milk [Unknown]
  - Weight gain poor [Not Recovered/Not Resolved]
  - Apnoea [Recovered/Resolved]
  - Large for dates baby [Unknown]
  - Foetal exposure during pregnancy [Unknown]
  - Respiratory failure [Recovered/Resolved]

NARRATIVE: CASE EVENT DATE: 2018
